FAERS Safety Report 10970003 (Version 1)
Quarter: 2015Q1

REPORT INFORMATION
  Report Type: Spontaneous
  Country: US (occurrence: None)
  Receive Date: 20150226
  Receipt Date: 20150226
  Transmission Date: 20150721
  Serious: No
  Sender: FDA-Public Use
  Company Number: TPA2009A02192

PATIENT
  Age: 39 Year
  Sex: Male

DRUGS (4)
  1. LISINOPRIL (LISINOPRIL) [Concomitant]
     Active Substance: LISINOPRIL
     Indication: GOUTY TOPHUS
     Route: 048
     Dates: start: 20090615, end: 20090629
  2. PREDNISONE (PREDNISONE) [Concomitant]
     Active Substance: PREDNISONE
  3. ULORIC [Suspect]
     Active Substance: FEBUXOSTAT
     Indication: GOUTY TOPHUS
     Dates: start: 20090615, end: 20090629
  4. COLCHICINE (COLCHICINE) [Concomitant]
     Active Substance: COLCHICINE

REACTIONS (1)
  - Hepatic steatosis [None]

NARRATIVE: CASE EVENT DATE: 20090708
